FAERS Safety Report 17054223 (Version 1)
Quarter: 2019Q4

REPORT INFORMATION
  Report Type: Spontaneous
  Country: US (occurrence: US)
  Receive Date: 20191120
  Receipt Date: 20191120
  Transmission Date: 20200122
  Serious: Yes (Other)
  Sender: FDA-Public Use
  Company Number: US-ASTRAZENECA-2019SF64392

PATIENT
  Sex: Male

DRUGS (2)
  1. FASENRA [Suspect]
     Active Substance: BENRALIZUMAB
     Indication: ASTHMA
     Dosage: 30MG/ML ONCE EVERY 4 WEEKS FOR THE FIRST 3 DOSES AND EVERY 8 WEEKS THEREAFTER
     Route: 058
     Dates: start: 2019, end: 201911
  2. DALIRESP [Suspect]
     Active Substance: ROFLUMILAST
     Route: 048
     Dates: start: 201911

REACTIONS (4)
  - Myelitis [Unknown]
  - Gastritis [Unknown]
  - Bipolar disorder [Unknown]
  - Myalgia [Recovered/Resolved]

NARRATIVE: CASE EVENT DATE: 2019
